FAERS Safety Report 9411937 (Version 3)
Quarter: 2013Q3

REPORT INFORMATION
  Report Type: Spontaneous
  Country: US (occurrence: US)
  Receive Date: 20130722
  Receipt Date: 20130808
  Transmission Date: 20140515
  Serious: Yes (Other)
  Sender: FDA-Public Use
  Company Number: PHEH2013US015448

PATIENT
  Sex: Male
  Weight: 85.71 kg

DRUGS (4)
  1. EXFORGE [Suspect]
     Dosage: 1 DF, QD (VALS 320 MG AND AMLO 5 MG)
     Route: 048
  2. QUINAPRIL [Concomitant]
  3. METOPROLOL [Concomitant]
  4. ALLOPURINOL [Concomitant]

REACTIONS (2)
  - Rib fracture [Unknown]
  - Fall [Unknown]
